FAERS Safety Report 5071665-9 (Version None)
Quarter: 2006Q3

REPORT INFORMATION
  Report Type: 
  Country: None (occurrence: None)
  Receive Date: 20060801
  Receipt Date: 20060719
  Transmission Date: 20061208
  Serious: Yes (Life-Threatening)
  Sender: FDA-Public Use
  Company Number: 2006073223

PATIENT
  Age: 27 Year
  Sex: Male

DRUGS (3)
  1. IDARUBICIN HCL [Suspect]
     Indication: ACUTE MYELOID LEUKAEMIA
     Dosage: (16 MG, DAILY), INTRAVENOUS
     Route: 042
     Dates: start: 20060519, end: 20060521
  2. CYTARABINE [Suspect]
     Indication: ACUTE MYELOID LEUKAEMIA
     Dosage: (5.5 GRAM, TWICE DAILY), INTRAVENOUS
     Route: 042
     Dates: start: 20060519, end: 20060525
  3. ETOPOSIDE [Suspect]
     Indication: ACUTE MYELOID LEUKAEMIA
     Dosage: (135 MG, DAILY), INTRAVENOUS
     Route: 042
     Dates: start: 20060519, end: 20060525

REACTIONS (14)
  - ANAEMIA [None]
  - DRUG TOXICITY [None]
  - ENTEROCOLITIS [None]
  - EYE DISORDER [None]
  - FEBRILE NEUTROPENIA [None]
  - ILEUS [None]
  - KLEBSIELLA SEPSIS [None]
  - LIVER FUNCTION TEST ABNORMAL [None]
  - LUNG CONSOLIDATION [None]
  - METABOLIC ALKALOSIS [None]
  - PLEURAL EFFUSION [None]
  - RESPIRATORY DISORDER [None]
  - SMALL INTESTINAL OBSTRUCTION [None]
  - THROMBOCYTOPENIA [None]
